FAERS Safety Report 8546690-3 (Version None)
Quarter: 2012Q3

REPORT INFORMATION
  Report Type: 
  Country: None (occurrence: None)
  Receive Date: 20120727
  Receipt Date: 20120126
  Transmission Date: 20120928
  Serious: No
  Sender: FDA-Public Use
  Company Number: US-ASTRAZENECA-2012SE05669

PATIENT
  Age: 52 Year
  Sex: Female

DRUGS (2)
  1. RISPERDAL [Concomitant]
  2. SEROQUEL [Suspect]
     Route: 048

REACTIONS (6)
  - WEIGHT INCREASED [None]
  - INCREASED APPETITE [None]
  - VITAMIN D DECREASED [None]
  - THERAPEUTIC RESPONSE UNEXPECTED [None]
  - SLEEP-RELATED EATING DISORDER [None]
  - BLOOD CHOLESTEROL INCREASED [None]
